FAERS Safety Report 12527241 (Version 1)
Quarter: 2016Q3

REPORT INFORMATION
  Report Type: Spontaneous
  Country: US (occurrence: US)
  Receive Date: 20160705
  Receipt Date: 20160705
  Transmission Date: 20161109
  Serious: Yes (Death, Other)
  Sender: FDA-Public Use
  Company Number: US-009507513-2003-108829-NL

PATIENT

DRUGS (1)
  1. ORGARAN [Suspect]
     Active Substance: DANAPAROID SODIUM
     Indication: THROMBOSIS PROPHYLAXIS

REACTIONS (4)
  - Cardiogenic shock [Fatal]
  - Circulatory collapse [Fatal]
  - Haemorrhage [Unknown]
  - Haemorrhagic stroke [Unknown]
